FAERS Safety Report 16034773 (Version 1)
Quarter: 2019Q1

REPORT INFORMATION
  Report Type: Spontaneous
  Country: ES (occurrence: ES)
  Receive Date: 20190305
  Receipt Date: 20190305
  Transmission Date: 20190418
  Serious: Yes (Other)
  Sender: FDA-Public Use
  Company Number: ES-ALKEM LABORATORIES LIMITED-ES-ALKEM-2019-01874

PATIENT

DRUGS (2)
  1. TEMOZOLOMIDE. [Suspect]
     Active Substance: TEMOZOLOMIDE
     Indication: PRODUCT USED FOR UNKNOWN INDICATION
     Dosage: UNK
     Route: 065
  2. BEVACIZUMAB. [Suspect]
     Active Substance: BEVACIZUMAB
     Indication: PRODUCT USED FOR UNKNOWN INDICATION
     Dosage: UNK
     Route: 065

REACTIONS (12)
  - Transaminases increased [Unknown]
  - Dehydration [Unknown]
  - Fatigue [Unknown]
  - Wound infection [Unknown]
  - Thrombocytopenia [Unknown]
  - Vomiting [Unknown]
  - Haemorrhage [Unknown]
  - Neutropenia [Unknown]
  - Venous thrombosis [Unknown]
  - Oesophagitis [Unknown]
  - Intestinal perforation [Unknown]
  - Impaired healing [Unknown]
